FAERS Safety Report 20702104 (Version 1)
Quarter: 2022Q2

REPORT INFORMATION
  Report Type: Spontaneous
  Country: HR (occurrence: HR)
  Receive Date: 20220412
  Receipt Date: 20220412
  Transmission Date: 20220721
  Serious: Yes (Other)
  Sender: FDA-Public Use
  Company Number: None

PATIENT
  Age: 27 Year
  Sex: Female

DRUGS (2)
  1. PREGABALIN [Suspect]
     Active Substance: PREGABALIN
     Dosage: 14 DF, 1X/DAY
     Route: 048
     Dates: start: 202201, end: 202201
  2. LAMICTAL [Suspect]
     Active Substance: LAMOTRIGINE
     Dosage: 10 DF, 1X/DAY
     Route: 048
     Dates: start: 202201, end: 202201

REACTIONS (5)
  - Seizure [Unknown]
  - Myoclonus [Unknown]
  - Intentional overdose [Unknown]
  - Muscle spasms [Unknown]
  - Suicide attempt [Unknown]

NARRATIVE: CASE EVENT DATE: 20220101
